FAERS Safety Report 6697361-X (Version None)
Quarter: 2010Q2

REPORT INFORMATION
  Report Type: 
  Country: None (occurrence: None)
  Receive Date: 20100426
  Receipt Date: 20100416
  Transmission Date: 20101027
  Serious: Yes (Hospitalization, Other)
  Sender: FDA-Public Use
  Company Number: DE-AMGEN-KDC403174

PATIENT
  Sex: Male
  Weight: 98 kg

DRUGS (13)
  1. NEULASTA [Suspect]
     Indication: CHEMOTHERAPY
     Route: 058
     Dates: start: 20100129
  2. CYCLOPHOSPHAMIDE [Concomitant]
     Route: 042
     Dates: start: 20100101
  3. ADRIAMYCIN PFS [Concomitant]
     Route: 042
     Dates: start: 20100101
  4. VINCRISTINE [Concomitant]
     Route: 042
     Dates: start: 20100101
  5. PREDNISONE [Concomitant]
     Route: 048
     Dates: start: 20100101
  6. GRANISETRON HYDROCHLORIDE [Concomitant]
     Route: 042
     Dates: start: 20100101
  7. RITUXIMAB [Concomitant]
     Route: 042
     Dates: start: 20100127
  8. EUGLUCON [Concomitant]
  9. DILATREND [Concomitant]
  10. ALLOPURINOL [Concomitant]
  11. ASPIRIN [Concomitant]
  12. TAMSULOSIN HCL [Concomitant]
  13. PANTOZOL [Concomitant]

REACTIONS (1)
  - WHITE BLOOD CELL COUNT ABNORMAL [None]
